FAERS Safety Report 24167665 (Version 1)
Quarter: 2024Q3

REPORT INFORMATION
  Report Type: Spontaneous
  Country: US (occurrence: US)
  Receive Date: 20240802
  Receipt Date: 20240802
  Transmission Date: 20241016
  Serious: Yes (Hospitalization)
  Sender: LUPIN
  Company Number: US-LUPIN PHARMACEUTICALS INC.-2024-07057

PATIENT
  Age: 45 Day
  Sex: Male

DRUGS (21)
  1. ETHAMBUTOL [Suspect]
     Active Substance: ETHAMBUTOL HYDROCHLORIDE
     Indication: Congenital tuberculosis
     Dosage: 20 MILLIGRAM/KILOGRAM
     Route: 065
  2. RIFAMPIN [Suspect]
     Active Substance: RIFAMPIN
     Indication: Congenital tuberculosis
     Dosage: 15 MILLIGRAM/KILOGRAM, QD
     Route: 048
  3. RIFAMPIN [Suspect]
     Active Substance: RIFAMPIN
     Dosage: 20 MILLIGRAM/KILOGRAM, QD
     Route: 048
  4. RIFAMPIN [Suspect]
     Active Substance: RIFAMPIN
     Dosage: 20 MILLIGRAM/KILOGRAM, QD
     Route: 048
  5. RIFAMPIN [Suspect]
     Active Substance: RIFAMPIN
     Dosage: 10 MILLIGRAM/KILOGRAM, QD
     Route: 048
  6. RIFAMPIN [Suspect]
     Active Substance: RIFAMPIN
     Dosage: 15 MILLIGRAM/KILOGRAM, QD
     Route: 048
  7. VANCOMYCIN [Suspect]
     Active Substance: VANCOMYCIN
     Indication: Congenital tuberculosis
     Dosage: 15 MILLIGRAM/KILOGRAM, EVERY 8 H
     Route: 065
  8. VANCOMYCIN [Suspect]
     Active Substance: VANCOMYCIN
     Dosage: UNK
     Route: 065
  9. METHYLPREDNISOLONE [Suspect]
     Active Substance: METHYLPREDNISOLONE
     Indication: Atypical pneumonia
     Dosage: UNK
     Route: 064
  10. CEFTRIAXONE [Suspect]
     Active Substance: CEFTRIAXONE\CEFTRIAXONE SODIUM
     Indication: Atypical pneumonia
     Dosage: UNK
     Route: 064
  11. AZITHROMYCIN [Suspect]
     Active Substance: AZITHROMYCIN
     Indication: Atypical pneumonia
     Dosage: UNK
     Route: 064
  12. VANCOMYCIN [Suspect]
     Active Substance: VANCOMYCIN
     Indication: Atypical pneumonia
     Dosage: UNK
     Route: 064
  13. ISONIAZID [Suspect]
     Active Substance: ISONIAZID
     Indication: Congenital tuberculosis
     Dosage: 10 MILLIGRAM/KILOGRAM, QD
     Route: 048
  14. ISONIAZID [Suspect]
     Active Substance: ISONIAZID
     Dosage: 15 MILLIGRAM/KILOGRAM, QD
     Route: 048
  15. PYRIDOXINE [Suspect]
     Active Substance: PYRIDOXINE
     Indication: Congenital tuberculosis
     Dosage: UNK
     Route: 065
  16. PYRAZINAMIDE [Suspect]
     Active Substance: PYRAZINAMIDE
     Indication: Congenital tuberculosis
     Dosage: 35 MILLIGRAM/KILOGRAM, QD
     Route: 065
  17. MEROPENEM [Suspect]
     Active Substance: MEROPENEM
     Indication: Tuberculosis gastrointestinal
     Dosage: UNK
     Route: 065
  18. AMIKACIN [Suspect]
     Active Substance: AMIKACIN
     Indication: Congenital tuberculosis
     Dosage: UNK
     Route: 065
  19. DEXAMETHASONE [Suspect]
     Active Substance: DEXAMETHASONE
     Indication: Atypical pneumonia
     Dosage: 6 MG, QD
     Route: 065
  20. PIPERACILLIN SODIUM\TAZOBACTAM SODIUM [Concomitant]
     Active Substance: PIPERACILLIN SODIUM\TAZOBACTAM SODIUM
     Indication: Sepsis neonatal
     Dosage: 80 MILLIGRAM/KILOGRAM, EVERY 6?HOUR
     Route: 065
  21. ONDANSETRON [Concomitant]
     Active Substance: ONDANSETRON
     Indication: Product used for unknown indication
     Dosage: 0.15 MG/KG
     Route: 065

REACTIONS (5)
  - Paradoxical drug reaction [Recovered/Resolved]
  - Therapy non-responder [Unknown]
  - Foetal exposure during pregnancy [Recovered/Resolved]
  - Product use issue [Recovered/Resolved]
  - Off label use [Recovered/Resolved]
